FAERS Safety Report 8136606-6 (Version None)
Quarter: 2012Q1

REPORT INFORMATION
  Report Type: 
  Country: None (occurrence: None)
  Receive Date: 20120214
  Receipt Date: 20120207
  Transmission Date: 20120608
  Serious: Yes (Hospitalization)
  Sender: FDA-Public Use
  Company Number: US-US-EMD SERONO, INC.-7099866

PATIENT
  Sex: Female

DRUGS (4)
  1. REBIF [Suspect]
     Indication: MULTIPLE SCLEROSIS
     Route: 058
     Dates: start: 20111024
  2. PREDNISONE TAB [Concomitant]
     Indication: COLITIS
  3. COPAXONE [Concomitant]
  4. LIALDA [Concomitant]
     Indication: COLITIS

REACTIONS (6)
  - LOSS OF CONSCIOUSNESS [None]
  - RHINORRHOEA [None]
  - INJECTION SITE HAEMATOMA [None]
  - CROHN'S DISEASE [None]
  - COLITIS ULCERATIVE [None]
  - MULTIPLE SCLEROSIS RELAPSE [None]
